FAERS Safety Report 4932426-1 (Version None)
Quarter: 2006Q1

REPORT INFORMATION
  Report Type: 
  Country: None (occurrence: None)
  Receive Date: 20060301
  Receipt Date: 20060220
  Transmission Date: 20060701
  Serious: Yes (Other)
  Sender: FDA-Public Use
  Company Number: 2006014960

PATIENT
  Sex: Female
  Weight: 80 kg

DRUGS (7)
  1. ZOLOFT [Suspect]
     Indication: DEPRESSION
     Dosage: 75 MG (1 IN 1 D), ORAL
     Route: 048
  2. TEGRETOL [Concomitant]
  3. CITODON (CODEINE PHOSPHATE, PARACETAMOL) [Concomitant]
  4. DIAZEPAM [Concomitant]
  5. STILNOCT (ZOLPIDEM TARTRATE) [Concomitant]
  6. PROPAVAN (PROPIOMAZINE MALEATE) [Concomitant]
  7. NITRAZEPAM [Concomitant]

REACTIONS (11)
  - ANOXIC ENCEPHALOPATHY [None]
  - ANXIETY [None]
  - BRAIN DAMAGE [None]
  - DRUG INEFFECTIVE [None]
  - EPILEPSY [None]
  - FALL [None]
  - HEPATITIS B [None]
  - HEPATITIS C [None]
  - PULSE ABSENT [None]
  - RESPIRATORY ARREST [None]
  - SLEEP DISORDER [None]
